FAERS Safety Report 17954284 (Version 1)
Quarter: 2020Q2

REPORT INFORMATION
  Report Type: Spontaneous
  Country: CZ (occurrence: CZ)
  Receive Date: 20200629
  Receipt Date: 20200629
  Transmission Date: 20200714
  Serious: Yes (Other)
  Sender: FDA-Public Use
  Company Number: CZ-AUROBINDO-AUR-APL-2020-031294

PATIENT
  Age: 42 Year
  Sex: Female

DRUGS (6)
  1. ASCORUTIN [Concomitant]
     Active Substance: ASCORBIC ACID\RUTIN
     Indication: PRODUCT USED FOR UNKNOWN INDICATION
     Dosage: UNK
     Route: 065
     Dates: start: 201912
  2. EUTHYROX [Concomitant]
     Active Substance: LEVOTHYROXINE SODIUM
     Indication: PRODUCT USED FOR UNKNOWN INDICATION
     Dosage: UNK
     Route: 065
  3. DETRALEX [Concomitant]
     Active Substance: DIOSMIN\HESPERIDIN
     Indication: PRODUCT USED FOR UNKNOWN INDICATION
     Dosage: UNK
     Route: 065
     Dates: start: 201912
  4. MIRTAZAPINE ORODISPERSIBLE TABLET [Suspect]
     Active Substance: MIRTAZAPINE
     Indication: INSOMNIA
     Dosage: 15 MILLIGRAM, ONCE A DAY (USED FOR 3,5 MONTHS, DOSAGE 0-0-1 )
     Route: 048
     Dates: start: 20191129, end: 202003
  5. MIRZATEN [Concomitant]
     Active Substance: MIRTAZAPINE
     Indication: INSOMNIA
     Dosage: 30 MILLIGRAM, ONCE A DAY (ONE SINGLE USE BEFORE USING MIRTAZAPIN)
     Route: 048
     Dates: start: 20191128, end: 20191128
  6. MILGAMMA [Concomitant]
     Indication: PRODUCT USED FOR UNKNOWN INDICATION
     Dosage: UNK, USED FOR ABOUT 1 MONTH DURING ADMINISTRATION OF MIRTAZAPIN
     Route: 065

REACTIONS (4)
  - Fatigue [Recovered/Resolved]
  - Metrorrhagia [Recovered/Resolved]
  - Headache [Recovered/Resolved]
  - Slow response to stimuli [Recovered/Resolved]

NARRATIVE: CASE EVENT DATE: 20191129
